FAERS Safety Report 5429103-X (Version None)
Quarter: 2007Q3

REPORT INFORMATION
  Report Type: 
  Country: None (occurrence: None)
  Receive Date: 20070829
  Receipt Date: 20070810
  Transmission Date: 20080115
  Serious: Yes (Hospitalization)
  Sender: FDA-Public Use
  Company Number: JP-BRISTOL-MYERS SQUIBB COMPANY-13891098

PATIENT
  Age: 62 Year
  Sex: Male

DRUGS (1)
  1. RESLIN [Suspect]
     Indication: DEPRESSION
     Route: 048
     Dates: start: 20010101

REACTIONS (2)
  - ALTERED STATE OF CONSCIOUSNESS [None]
  - THIRST [None]
